FAERS Safety Report 7338768-7 (Version None)
Quarter: 2011Q1

REPORT INFORMATION
  Report Type: 
  Country: None (occurrence: None)
  Receive Date: 20110308
  Receipt Date: 20110223
  Transmission Date: 20110831
  Serious: Yes (Hospitalization)
  Sender: FDA-Public Use
  Company Number: PHHY2011BR15360

PATIENT
  Age: 70 Year
  Sex: Female

DRUGS (1)
  1. FORASEQ [Suspect]
     Dosage: UNK

REACTIONS (2)
  - WRONG TECHNIQUE IN DRUG USAGE PROCESS [None]
  - LUNG DISORDER [None]
